FAERS Safety Report 7069632-9 (Version None)
Quarter: 2010Q4

REPORT INFORMATION
  Report Type: 
  Country: None (occurrence: None)
  Receive Date: 20101028
  Receipt Date: 20100326
  Transmission Date: 20110411
  Serious: No
  Sender: FDA-Public Use
  Company Number: US-WYE-H14375810

PATIENT
  Sex: Male
  Weight: 89.89 kg

DRUGS (9)
  1. PROTONIX [Suspect]
     Indication: GASTRIC DISORDER
     Dosage: UNKNOWN
     Dates: start: 20090101, end: 20090101
  2. LIPITOR [Concomitant]
     Dosage: UNKNOWN
  3. ALTACE [Concomitant]
  4. ACETYLSALICYLIC ACID [Concomitant]
  5. DEPAKOTE [Concomitant]
  6. LEXAPRO [Concomitant]
  7. VALIUM [Concomitant]
  8. PLAVIX [Concomitant]
     Dosage: UNKNOWN
  9. METOPROLOL [Concomitant]

REACTIONS (2)
  - CARDIAC OUTPUT DECREASED [None]
  - CONDITION AGGRAVATED [None]
